FAERS Safety Report 18033768 (Version 1)
Quarter: 2020Q3

REPORT INFORMATION
  Report Type: Spontaneous
  Country: ES (occurrence: ES)
  Receive Date: 20200716
  Receipt Date: 20200716
  Transmission Date: 20201103
  Serious: Yes (Other)
  Sender: FDA-Public Use
  Company Number: ES-ASTRAZENECA-2020SE86357

PATIENT
  Age: 73 Year
  Sex: Female

DRUGS (2)
  1. FULVESTRANT. [Suspect]
     Active Substance: FULVESTRANT
     Route: 030
  2. PALBOCICLIB [Suspect]
     Active Substance: PALBOCICLIB
     Dosage: 125 MG, DAILY (3 WEEKS ON / 1 WEEK OFF)
     Route: 065

REACTIONS (7)
  - Oral papilloma [Unknown]
  - Neutropenia [Not Recovered/Not Resolved]
  - Plicated tongue [Unknown]
  - Oral disorder [Unknown]
  - Skin papilloma [Unknown]
  - Neurodermatitis [Unknown]
  - Mucosal inflammation [Unknown]
